FAERS Safety Report 6722902-3 (Version None)
Quarter: 2010Q2

REPORT INFORMATION
  Report Type: 
  Country: None (occurrence: None)
  Receive Date: 20100511
  Receipt Date: 20100426
  Transmission Date: 20101027
  Serious: Yes (Life-Threatening, Hospitalization)
  Sender: FDA-Public Use
  Company Number: 2010001652

PATIENT
  Age: 73 Year
  Sex: Male

DRUGS (7)
  1. ERLOTINIB (ERLOTINIB) (TABLET) (ERLOTINIB) [Suspect]
     Indication: LUNG NEOPLASM MALIGNANT
     Dosage: (150 MG,QD), ORAL
     Route: 048
     Dates: start: 20100419
  2. PRESTARIUM (PERINDOPRIL) [Concomitant]
  3. MEGESTROL ACETATE [Concomitant]
  4. CYCLONAMINE (ETAMSILATE) [Concomitant]
  5. EXACYL (TRANEXAMIC ACID) [Concomitant]
  6. PHYTONADIONE [Concomitant]
  7. THIOCODIN (THIOCODIN) [Concomitant]

REACTIONS (1)
  - RESPIRATORY TRACT HAEMORRHAGE [None]
